FAERS Safety Report 8516809-9 (Version None)
Quarter: 2012Q3

REPORT INFORMATION
  Report Type: 
  Country: None (occurrence: None)
  Receive Date: 20120706
  Receipt Date: 20120627
  Transmission Date: 20120928
  Serious: Yes (Death, Hospitalization)
  Sender: FDA-Public Use
  Company Number: 2012000156

PATIENT
  Age: 92 Year
  Sex: Female

DRUGS (2)
  1. ACEON [Suspect]
     Indication: HYPERTENSION
     Dosage: MG QD, ORAL
     Route: 048
  2. PREVISCAN (FLUINDIONE) [Suspect]
     Indication: CEREBROVASCULAR ACCIDENT
     Dosage: ORAL
     Route: 048
     Dates: end: 20120312

REACTIONS (9)
  - BRONCHITIS [None]
  - BLOOD GLUCOSE INCREASED [None]
  - PNEUMONIA ASPIRATION [None]
  - HYPERTENSION [None]
  - INTERNATIONAL NORMALISED RATIO INCREASED [None]
  - CEREBRAL HAEMATOMA [None]
  - CARDIAC FAILURE [None]
  - BLOOD CREATININE INCREASED [None]
  - RESPIRATORY DISTRESS [None]
